FAERS Safety Report 4805179-5 (Version None)
Quarter: 2005Q4

REPORT INFORMATION
  Report Type: 
  Country: None (occurrence: None)
  Receive Date: 20051017
  Receipt Date: 20050930
  Transmission Date: 20060501
  Serious: No
  Sender: FDA-Public Use
  Company Number: US-2005-010013

PATIENT
  Age: 47 Year
  Sex: Female

DRUGS (22)
  1. BETASERON (INTERFERON BETA - 1B) INJECTION, 250UG [Suspect]
     Indication: RELAPSING-REMITTING MULTIPLE SCLEROSIS
     Dosage: 8 MIU, EVERY 2D, SUBCUTANEOUS
     Route: 058
     Dates: start: 20030702
  2. GLUCOPHAGE [Concomitant]
  3. ZETIA [Concomitant]
  4. SYNTHROID [Concomitant]
  5. NEXIUM [Concomitant]
  6. PLAQUENIL [Concomitant]
  7. CELEBREX [Concomitant]
  8. TOPROL-XL [Concomitant]
  9. LEXAPRO [Concomitant]
  10. VERELAN [Concomitant]
  11. AMARYL [Concomitant]
  12. FLEXERIL [Concomitant]
  13. SUCRALFATE [Concomitant]
  14. TOPAMAX [Concomitant]
  15. TEMAZEPAM [Concomitant]
  16. ENTERIC ASPIRIN (ACETYLSALICYLIC ACID) [Concomitant]
  17. MULTIVITAMINS (PANTHENOL, RETINOL) [Concomitant]
  18. CALCIUM (CALCIUM) [Concomitant]
  19. FOLIC ACID [Concomitant]
  20. LORTAB [Concomitant]
  21. LASIX [Concomitant]
  22. K-DUR 10 [Concomitant]

REACTIONS (4)
  - CATARACT [None]
  - CONDITION AGGRAVATED [None]
  - MULTIPLE SCLEROSIS RELAPSE [None]
  - SIMPLE PARTIAL SEIZURES [None]
